FAERS Safety Report 8482826-0 (Version None)
Quarter: 2012Q3

REPORT INFORMATION
  Report Type: 
  Country: None (occurrence: None)
  Receive Date: 20120702
  Receipt Date: 20120627
  Transmission Date: 20120928
  Serious: Yes (Hospitalization)
  Sender: FDA-Public Use
  Company Number: CH-BAYER-2012-063631

PATIENT
  Age: 75 Year
  Sex: Male

DRUGS (9)
  1. ASPIRIN [Suspect]
     Dosage: 100 MG, QD
     Dates: end: 20120421
  2. COUMADIN [Suspect]
     Dosage: UNK
     Route: 048
     Dates: end: 20120421
  3. PLAVIX [Suspect]
     Dosage: 75 MG, QD
     Route: 048
  4. ARCOXIA [Suspect]
     Dosage: UNK
     Route: 048
     Dates: end: 20120421
  5. PROSCAR [Concomitant]
     Dosage: UNK
     Route: 048
  6. EXFORGE HCT [Concomitant]
     Dosage: UNK
     Route: 048
  7. VOLTAREN [Suspect]
     Dosage: 50 MG, TID
     Route: 048
     Dates: end: 20120421
  8. MAGNESIUM DIASPORAL [Concomitant]
     Route: 048
  9. CRESTOR [Concomitant]
     Dosage: 10 MG, QD
     Dates: end: 20120421

REACTIONS (6)
  - GASTROINTESTINAL HAEMORRHAGE [None]
  - SYNCOPE [None]
  - ANAEMIA [None]
  - DUODENAL ULCER [None]
  - MELAENA [None]
  - RENAL FAILURE CHRONIC [None]
